FAERS Safety Report 23449652 (Version 3)
Quarter: 2024Q1

REPORT INFORMATION
  Report Type: Report from Study
  Country: JP (occurrence: JP)
  Receive Date: 20240129
  Receipt Date: 20240213
  Transmission Date: 20240410
  Serious: Yes (Other)
  Sender: FDA-Public Use
  Company Number: JP-JNJFOC-20240166702

PATIENT

DRUGS (1)
  1. SIMPONI [Suspect]
     Active Substance: GOLIMUMAB
     Indication: Rheumatoid arthritis
     Dosage: DOSE UNKNOWN
     Route: 058

REACTIONS (6)
  - Pruritus [Unknown]
  - Haemorrhage [Unknown]
  - Eczema [Unknown]
  - Urticaria [Unknown]
  - Oedema [Unknown]
  - Visual acuity reduced [Unknown]
